FAERS Safety Report 19401571 (Version 2)
Quarter: 2022Q3

REPORT INFORMATION
  Report Type: Spontaneous
  Country: CA (occurrence: CA)
  Receive Date: 20210610
  Receipt Date: 20220712
  Transmission Date: 20221027
  Serious: Yes (Other)
  Sender: FDA-Public Use
  Company Number: CA-GLAXOSMITHKLINE-CA2021AMR121424

PATIENT

DRUGS (2)
  1. BENLYSTA [Suspect]
     Active Substance: BELIMUMAB
     Indication: Systemic lupus erythematosus
     Dosage: 640 MG, UNK
     Dates: start: 20180614
  2. BENLYSTA [Suspect]
     Active Substance: BELIMUMAB
     Dosage: 640 MG, UNK

REACTIONS (5)
  - Systemic lupus erythematosus [Unknown]
  - Migraine [Unknown]
  - Aura [Recovered/Resolved]
  - Thought blocking [Recovered/Resolved]
  - Product dose omission issue [Unknown]
